FAERS Safety Report 24876849 (Version 1)
Quarter: 2025Q1

REPORT INFORMATION
  Report Type: Spontaneous
  Country: CA (occurrence: CA)
  Receive Date: 20250123
  Receipt Date: 20250123
  Transmission Date: 20250408
  Serious: Yes (Other)
  Sender: TEVA
  Company Number: CA-TEVA-VS-3289792

PATIENT
  Age: 22 Year
  Sex: Female
  Weight: 78 kg

DRUGS (1)
  1. OCTREOTIDE [Suspect]
     Active Substance: OCTREOTIDE
     Indication: Gastrointestinal haemorrhage
     Route: 030

REACTIONS (3)
  - Pain [Recovering/Resolving]
  - Tenderness [Recovering/Resolving]
  - Injection site mass [Recovering/Resolving]
